FAERS Safety Report 19708257 (Version 1)
Quarter: 2021Q3

REPORT INFORMATION
  Report Type: Spontaneous
  Country: JP (occurrence: JP)
  Receive Date: 20210816
  Receipt Date: 20210816
  Transmission Date: 20211014
  Serious: Yes (Hospitalization, Other)
  Sender: FDA-Public Use
  Company Number: JP-ELI_LILLY_AND_COMPANY-JP202108004106

PATIENT
  Age: 77 Year
  Sex: Female

DRUGS (2)
  1. DULOXETINE HYDROCHLORIDE. [Suspect]
     Active Substance: DULOXETINE HYDROCHLORIDE
     Indication: PRODUCT USED FOR UNKNOWN INDICATION
     Route: 048
  2. RASAGILINE. [Suspect]
     Active Substance: RASAGILINE
     Indication: PARKINSON^S DISEASE
     Route: 048

REACTIONS (2)
  - Electrocardiogram QT prolonged [Unknown]
  - Serotonin syndrome [Recovering/Resolving]
